FAERS Safety Report 15047928 (Version 2)
Quarter: 2018Q3

REPORT INFORMATION
  Report Type: Spontaneous
  Country: AR (occurrence: AR)
  Receive Date: 20180622
  Receipt Date: 20180703
  Transmission Date: 20181010
  Serious: Yes (Death, Hospitalization, Other)
  Sender: FDA-Public Use
  Company Number: AR-ROCHE-2142646

PATIENT
  Sex: Male

DRUGS (1)
  1. GAZYVA [Suspect]
     Active Substance: OBINUTUZUMAB
     Indication: CHRONIC LYMPHOCYTIC LEUKAEMIA
     Dosage: DAY 1 CYCLE 1, THE DAY 1 CYCLE 2 WAS ON 13/NOV/2017, THE DAY 8 CYCLE 1 WAS ON 21/NOV/2017, THE DAY 1
     Route: 065
     Dates: start: 20171112

REACTIONS (5)
  - Sepsis [Unknown]
  - Multiple organ dysfunction syndrome [Fatal]
  - Chronic obstructive pulmonary disease [Unknown]
  - Pneumonia [Unknown]
  - Respiratory tract infection [Unknown]
